FAERS Safety Report 16106000 (Version 1)
Quarter: 2019Q1

REPORT INFORMATION
  Report Type: Spontaneous
  Country: SE (occurrence: SE)
  Receive Date: 20190322
  Receipt Date: 20190322
  Transmission Date: 20190418
  Serious: Yes (Life-Threatening, Hospitalization, Disabling)
  Sender: FDA-Public Use
  Company Number: SE-PFIZER INC-2019119482

PATIENT
  Age: 74 Year
  Sex: Female
  Weight: 45 kg

DRUGS (23)
  1. HALDOL [Interacting]
     Active Substance: HALOPERIDOL
     Dosage: UNK
  2. HIRUDOID [Interacting]
     Active Substance: GLYCOSAMINOGLYCANS
     Indication: VARICOSE VEIN
     Dosage: UNK
  3. HEMINEVRIN [CLOMETHIAZOLE] [Interacting]
     Active Substance: CLOMETHIAZOLE
     Indication: CONFUSIONAL STATE
  4. HEMINEVRIN [CLOMETHIAZOLE] [Interacting]
     Active Substance: CLOMETHIAZOLE
     Indication: ANXIETY
     Dosage: 300 MG, UNK
  5. HEMINEVRIN [CLOMETHIAZOLE] [Interacting]
     Active Substance: CLOMETHIAZOLE
     Indication: SLEEP DISORDER
     Dosage: 50 MG, UNK
  6. LEVAXIN [Interacting]
     Active Substance: LEVOTHYROXINE SODIUM
     Dosage: 25 UG, UNK
  7. DIMETICONE [Interacting]
     Active Substance: DIMETHICONE
     Indication: FLATULENCE
     Dosage: UNK
  8. ALVEDON [Interacting]
     Active Substance: ACETAMINOPHEN
     Indication: PAIN
     Dosage: UNK
  9. NIFEREX [FERROGLYCINE SULFATE COMPLEX] [Interacting]
     Active Substance: FERROGLYCINE SULFATE
     Indication: MINERAL SUPPLEMENTATION
     Dosage: UNK
  10. METOPROLOL. [Interacting]
     Active Substance: METOPROLOL
     Indication: HYPERTENSION
     Dosage: UNK
  11. GLYCERYL TRINITRATE [Interacting]
     Active Substance: NITROGLYCERIN
     Indication: VASODILATATION
     Dosage: UNK
  12. ACETYLSALICYLIC ACID [Interacting]
     Active Substance: ASPIRIN
     Indication: PAIN
     Dosage: UNK
  13. ACETYLCYSTEINE. [Interacting]
     Active Substance: ACETYLCYSTEINE
     Indication: INCREASED VISCOSITY OF UPPER RESPIRATORY SECRETION
     Dosage: UNK
  14. OXASCAND [Interacting]
     Active Substance: OXAZEPAM
     Dosage: UNK
  15. TROMBYL [Interacting]
     Active Substance: ASPIRIN
     Indication: ANTICOAGULANT THERAPY
     Dosage: UNK
  16. PRAMIPEXOLE. [Interacting]
     Active Substance: PRAMIPEXOLE
     Indication: MUSCLE SPASMS
     Dosage: UNK
  17. DIAZEMULS NOVUM [Interacting]
     Active Substance: DIAZEPAM
     Indication: ANXIETY
     Dosage: UNK
  18. LEVAXIN [Interacting]
     Active Substance: LEVOTHYROXINE SODIUM
     Indication: HYPOTHYROIDISM
     Dosage: 100 UG, UNK
  19. ISOSORBIDE MONONITRATE. [Interacting]
     Active Substance: ISOSORBIDE MONONITRATE
     Indication: VASODILATATION
     Dosage: UNK
  20. ATORVASTATIN CALCIUM. [Suspect]
     Active Substance: ATORVASTATIN CALCIUM
     Indication: BLOOD CHOLESTEROL INCREASED
     Dosage: UNK
  21. NATRIUMKLORID [Interacting]
     Active Substance: SODIUM CHLORIDE
     Dosage: UNK
  22. TRAMADOL. [Interacting]
     Active Substance: TRAMADOL
     Indication: PAIN
     Dosage: UNK
  23. ESOMEPRAZOLE. [Interacting]
     Active Substance: ESOMEPRAZOLE MAGNESIUM
     Dosage: UNK

REACTIONS (6)
  - Chronic fatigue syndrome [Unknown]
  - Sedation [Unknown]
  - Fatigue [Unknown]
  - Muscle atrophy [Unknown]
  - Drug interaction [Unknown]
  - Toxicity to various agents [Unknown]

NARRATIVE: CASE EVENT DATE: 2013
